FAERS Safety Report 8885497 (Version 2)
Quarter: 2012Q4

REPORT INFORMATION
  Report Type: Report from Study
  Country: US (occurrence: US)
  Receive Date: 20121101
  Receipt Date: 20121114
  Transmission Date: 20130627
  Serious: Yes (Other)
  Sender: FDA-Public Use
  Company Number: US-PFIZER INC-2012269923

PATIENT
  Age: 61 Year
  Sex: Male
  Weight: 91 kg

DRUGS (10)
  1. LIPITOR [Suspect]
     Dosage: UNK
  2. NIASPAN [Suspect]
     Indication: HIGH DENSITY LIPOPROTEIN ABNORMAL
     Dosage: 500 mg, UNK
     Dates: start: 201101
  3. NIASPAN [Suspect]
     Indication: LOW DENSITY LIPOPROTEIN ABNORMAL
     Dosage: 1000 mg, every night
     Dates: start: 201101
  4. NIASPAN [Suspect]
     Dosage: 1000 mg, every night
     Dates: end: 201209
  5. NIASPAN [Suspect]
     Dosage: 1000 mg, every night
     Dates: start: 201209
  6. ETHANOL [Suspect]
     Dosage: UNK
  7. ASPIRIN [Concomitant]
     Dosage: UNK
  8. RAMIPRIL [Concomitant]
     Dosage: 5 mg, UNK
  9. PREVACID [Concomitant]
     Dosage: UNK
  10. CRESTOR [Concomitant]
     Dosage: UNK

REACTIONS (7)
  - Feeling abnormal [Unknown]
  - Flushing [Recovered/Resolved]
  - Feeling hot [Unknown]
  - Paraesthesia [Unknown]
  - Back pain [Recovered/Resolved]
  - Pain in extremity [Unknown]
  - Tremor [Unknown]
